FAERS Safety Report 8793832 (Version 2)
Quarter: 2015Q1

REPORT INFORMATION
  Report Type: Report from Study
  Country: US (occurrence: US)
  Receive Date: 20120917
  Receipt Date: 20150331
  Transmission Date: 20150721
  Serious: Yes (Death)
  Sender: FDA-Public Use
  Company Number: US-ROCHE-1127662

PATIENT
  Sex: Female
  Weight: 55 kg

DRUGS (15)
  1. IRESSA [Concomitant]
     Active Substance: GEFITINIB
     Route: 065
  2. FLAGYL [Concomitant]
     Active Substance: METRONIDAZOLE\METRONIDAZOLE HYDROCHLORIDE
     Route: 065
  3. OXYCONTIN [Concomitant]
     Active Substance: OXYCODONE HYDROCHLORIDE
     Route: 065
  4. ALOXI [Concomitant]
     Active Substance: PALONOSETRON HYDROCHLORIDE
     Route: 042
  5. AVASTIN [Suspect]
     Active Substance: BEVACIZUMAB
     Indication: BREAST CANCER FEMALE
     Route: 042
     Dates: start: 20050906
  6. RITUXAN [Concomitant]
     Active Substance: RITUXIMAB
     Route: 065
  7. ZOMETA [Concomitant]
     Active Substance: ZOLEDRONIC ACID
     Route: 042
  8. AUGMENTIN [Concomitant]
     Active Substance: AMOXICILLIN\CLAVULANATE POTASSIUM
     Route: 065
  9. DECADRON [Concomitant]
     Active Substance: DEXAMETHASONE
     Route: 042
  10. LEVAQUIN [Concomitant]
     Active Substance: LEVOFLOXACIN
  11. ARANESP [Concomitant]
     Active Substance: DARBEPOETIN ALFA
     Route: 058
  12. AVASTIN [Suspect]
     Active Substance: BEVACIZUMAB
     Indication: CHOLANGIOCARCINOMA
  13. ABRAXANE [Concomitant]
     Active Substance: PACLITAXEL
     Route: 065
  14. AVASTIN [Suspect]
     Active Substance: BEVACIZUMAB
     Indication: HEPATIC CANCER
  15. NEUPOGEN [Concomitant]
     Active Substance: FILGRASTIM
     Route: 065

REACTIONS (15)
  - Neutropenia [Unknown]
  - Epigastric discomfort [Unknown]
  - Musculoskeletal discomfort [Unknown]
  - Palmar erythema [Unknown]
  - Abdominal discomfort [Recovered/Resolved]
  - Rash [Unknown]
  - Paraesthesia [Unknown]
  - Off label use [Unknown]
  - Abdominal pain upper [Unknown]
  - Diarrhoea [Unknown]
  - Death [Fatal]
  - Sinusitis [Unknown]
  - Hepatomegaly [Unknown]
  - Onychomadesis [Unknown]
  - Fatigue [Recovered/Resolved]
